FAERS Safety Report 5651891-8 (Version None)
Quarter: 2008Q1

REPORT INFORMATION
  Report Type: 
  Country: None (occurrence: None)
  Receive Date: 20080304
  Receipt Date: 20080220
  Transmission Date: 20080703
  Serious: Yes (Hospitalization)
  Sender: FDA-Public Use
  Company Number: 2008BI001688

PATIENT
  Age: 69 Year
  Sex: Male
  Weight: 81.1939 kg

DRUGS (1)
  1. AVONEX [Suspect]
     Indication: MULTIPLE SCLEROSIS
     Dosage: 30 UG QW IM
     Route: 030
     Dates: start: 19960101

REACTIONS (7)
  - EXTRASYSTOLES [None]
  - FACIAL PAIN [None]
  - HEADACHE [None]
  - IMMOBILE [None]
  - PAIN [None]
  - TRIGEMINAL NEURALGIA [None]
  - WEIGHT DECREASED [None]
